FAERS Safety Report 15285445 (Version 1)
Quarter: 2018Q3

REPORT INFORMATION
  Report Type: Spontaneous
  Country: US (occurrence: US)
  Receive Date: 20180801
  Receipt Date: 20180801
  Transmission Date: 20181010
  Serious: Yes (Other)
  Sender: FDA-Public Use
  Company Number: None

PATIENT
  Age: 65 Year
  Sex: Female
  Weight: 87.75 kg

DRUGS (13)
  1. PRAVASTATIN. [Concomitant]
     Active Substance: PRAVASTATIN
  2. GLUCOSMINE 1500MG WITH CHRONDROITIN [Concomitant]
  3. BIOTIN [Concomitant]
     Active Substance: BIOTIN
  4. VALSARTAN 160MG MANUFACTURED BY SOLCO LOT #343818001 EXP 10/2019 [Suspect]
     Active Substance: VALSARTAN
     Indication: HYPERTENSION
     Dosage: ?          QUANTITY:1 TABLET(S);?
     Route: 048
     Dates: start: 20180629, end: 20180801
  5. METFORMIN [Concomitant]
     Active Substance: METFORMIN HYDROCHLORIDE
  6. CALCIUM WITH VITAMIN D [Concomitant]
     Active Substance: CALCIUM\VITAMIN D
  7. COENZYME Q10 [Concomitant]
     Active Substance: UBIDECARENONE
  8. VITAMIN C [Concomitant]
     Active Substance: ASCORBIC ACID
  9. FISH OIL [Concomitant]
     Active Substance: FISH OIL
  10. ASPIRIN. [Concomitant]
     Active Substance: ASPIRIN
  11. FLUOXETINE [Concomitant]
     Active Substance: FLUOXETINE HYDROCHLORIDE
  12. VITAMIN B COMPLEX [Concomitant]
     Active Substance: CYANOCOBALAMIN\DEXPANTHENOL\NIACINAMIDE\PYRIDOXINE HYDROCHLORIDE\RIBOFLAVIN 5^-PHOSPHATE SODIUM\THIAMINE HYDROCHLORIDE\VITAMIN B COMPLEX
  13. COLLAGEN [Concomitant]
     Active Substance: COLLAGEN

REACTIONS (3)
  - Renal impairment [None]
  - Blood uric acid increased [None]
  - Pain in extremity [None]

NARRATIVE: CASE EVENT DATE: 20180612
